FAERS Safety Report 6098088-8 (Version None)
Quarter: 2009Q1

REPORT INFORMATION
  Report Type: 
  Country: None (occurrence: None)
  Receive Date: 20090227
  Receipt Date: 20080211
  Transmission Date: 20090719
  Serious: Yes (Other)
  Sender: FDA-Public Use
  Company Number: GB-RB-009304-08

PATIENT
  Age: 30 Year
  Sex: Female

DRUGS (1)
  1. SUBUTEX [Suspect]
     Route: 065

REACTIONS (1)
  - PARANOIA [None]
